FAERS Safety Report 5470278-4 (Version None)
Quarter: 2007Q3

REPORT INFORMATION
  Report Type: 
  Country: None (occurrence: None)
  Receive Date: 20070927
  Receipt Date: 20070919
  Transmission Date: 20080115
  Serious: Yes (Life-Threatening, Hospitalization, Other)
  Sender: FDA-Public Use
  Company Number: JP-ABBOTT-04P-087-0272253-00

PATIENT
  Sex: Male

DRUGS (14)
  1. KALETRA [Suspect]
     Indication: HIV INFECTION
     Route: 048
     Dates: start: 20030813, end: 20040913
  2. KALETRA [Suspect]
     Route: 048
     Dates: start: 20041026, end: 20061112
  3. KALETRA [Suspect]
     Indication: HIV INFECTION
     Route: 048
     Dates: start: 20061113
  4. NELFINAVIR [Suspect]
     Indication: HIV INFECTION
     Route: 048
     Dates: start: 20030401, end: 20030812
  5. TENOFOVIR DISOPROXIL FUMARATE [Concomitant]
     Indication: HIV INFECTION
     Route: 048
     Dates: start: 20030813
  6. ZIDOVUDINE [Concomitant]
     Indication: HIV INFECTION
     Route: 048
     Dates: start: 20030401, end: 20030812
  7. DIDANOSINE [Concomitant]
     Indication: HIV INFECTION
     Route: 048
     Dates: start: 20030813, end: 20040913
  8. ZALCITABINE [Concomitant]
     Indication: HIV INFECTION
     Route: 048
     Dates: start: 20030401, end: 20030812
  9. STAVUDINE [Concomitant]
     Indication: HIV INFECTION
     Route: 048
     Dates: start: 20041026, end: 20041029
  10. STAVUDINE [Concomitant]
     Route: 048
     Dates: start: 20041030, end: 20041105
  11. STAVUDINE [Concomitant]
     Route: 048
     Dates: start: 20041106, end: 20041215
  12. LAMIVUDINE [Concomitant]
     Indication: HIV INFECTION
     Route: 048
     Dates: start: 20041026, end: 20041029
  13. LAMIVUDINE [Concomitant]
     Route: 048
     Dates: start: 20041030
  14. ABACAVIR [Concomitant]
     Indication: HIV INFECTION
     Dates: start: 20041216

REACTIONS (8)
  - BLOOD TRIGLYCERIDES INCREASED [None]
  - BLOOD URIC ACID INCREASED [None]
  - FLATULENCE [None]
  - HYPOAESTHESIA [None]
  - PNEUMONIA [None]
  - RENAL FAILURE ACUTE [None]
  - RESPIRATORY FAILURE [None]
  - RHABDOMYOLYSIS [None]
